FAERS Safety Report 24541445 (Version 1)
Quarter: 2024Q4

REPORT INFORMATION
  Report Type: Spontaneous
  Country: IT (occurrence: IT)
  Receive Date: 20241023
  Receipt Date: 20241023
  Transmission Date: 20250114
  Serious: Yes (Other)
  Sender: ALEXION PHARMACEUTICALS
  Company Number: None

PATIENT
  Age: 65 Year

DRUGS (6)
  1. TAGRISSO [Suspect]
     Active Substance: OSIMERTINIB
     Indication: Non-small cell lung cancer
     Dosage: 80 MILLIGRAM
  2. TAGRISSO [Suspect]
     Active Substance: OSIMERTINIB
     Dosage: 80 MILLIGRAM
  3. TAGRISSO [Suspect]
     Active Substance: OSIMERTINIB
     Dosage: 80 MILLIGRAM
  4. TAGRISSO [Suspect]
     Active Substance: OSIMERTINIB
     Dosage: 80 MILLIGRAM
  5. XGEVA [Concomitant]
     Active Substance: DENOSUMAB
     Dosage: 1 DOSAGE FORM, Q4W
  6. XGEVA [Concomitant]
     Active Substance: DENOSUMAB
     Dosage: 1 DOSAGE FORM, Q4W
     Route: 065

REACTIONS (3)
  - Vulvovaginal mycotic infection [Recovered/Resolved]
  - Folliculitis [Not Recovered/Not Resolved]
  - Erosive pustular dermatosis [Not Recovered/Not Resolved]
